FAERS Safety Report 11158518 (Version 1)
Quarter: 2015Q2

REPORT INFORMATION
  Report Type: Spontaneous
  Country: BR (occurrence: BR)
  Receive Date: 20150603
  Receipt Date: 20150603
  Transmission Date: 20150821
  Serious: Yes (Other)
  Sender: FDA-Public Use
  Company Number: BR-SA-2014SA116513

PATIENT
  Age: 39 Year
  Sex: Female
  Weight: 56 kg

DRUGS (3)
  1. CLEXANE [Suspect]
     Active Substance: ENOXAPARIN SODIUM
     Indication: THROMBOSIS
     Dosage: APPLIED IN THE ABDOMEN
     Route: 065
     Dates: start: 20140823, end: 20150401
  2. FOLIC ACID. [Suspect]
     Active Substance: FOLIC ACID
     Indication: PRENATAL CARE
     Route: 065
     Dates: start: 20140823
  3. PASSIFLORA EXTRACT [Suspect]
     Active Substance: PASSIFLORA INCARNATA FLOWERING TOP
     Indication: ANXIETY
     Route: 065
     Dates: start: 20140823

REACTIONS (2)
  - Exposure during pregnancy [Unknown]
  - Caesarean section [Unknown]
